FAERS Safety Report 12389840 (Version 1)
Quarter: 2016Q2

REPORT INFORMATION
  Report Type: Spontaneous
  Country: US (occurrence: US)
  Receive Date: 20160520
  Receipt Date: 20160520
  Transmission Date: 20160815
  Serious: No
  Sender: FDA-Public Use
  Company Number: US-ACTELION-A-US2016-135194

PATIENT
  Age: 38 Year
  Sex: Female

DRUGS (4)
  1. TYVASO [Concomitant]
     Active Substance: TREPROSTINIL
  2. SILDENAFIL. [Concomitant]
     Active Substance: SILDENAFIL
     Dosage: UNK
     Dates: start: 2008
  3. VELETRI [Suspect]
     Active Substance: EPOPROSTENOL
     Indication: PULMONARY ARTERIAL HYPERTENSION
     Dosage: UNK
     Route: 042
     Dates: start: 2016
  4. AMBRISENTAN [Suspect]
     Active Substance: AMBRISENTAN
     Indication: PULMONARY ARTERIAL HYPERTENSION
     Dosage: 10 MG, QD
     Route: 048
     Dates: start: 20150428

REACTIONS (9)
  - Headache [Unknown]
  - Application site rash [Unknown]
  - Pain [Unknown]
  - Pain in extremity [Unknown]
  - Application site pruritus [Unknown]
  - Diarrhoea [Unknown]
  - Pain in jaw [Unknown]
  - Application site erythema [Unknown]
  - Back pain [Unknown]

NARRATIVE: CASE EVENT DATE: 201602
